FAERS Safety Report 8102432-7 (Version None)
Quarter: 2012Q1

REPORT INFORMATION
  Report Type: 
  Country: None (occurrence: None)
  Receive Date: 20120131
  Receipt Date: 20120131
  Transmission Date: 20120608
  Serious: No
  Sender: FDA-Public Use
  Company Number: None

PATIENT
  Sex: Female
  Weight: 63.5036 kg

DRUGS (2)
  1. BIOTIN [Suspect]
     Indication: NAIL DISORDER
     Dosage: 5,000 MCG DAILY MOUTH
     Route: 048
     Dates: start: 20111101, end: 20111118
  2. BIOTIN [Suspect]
     Indication: HAIR DISORDER
     Dosage: 5,000 MCG DAILY MOUTH
     Route: 048
     Dates: start: 20111101, end: 20111118

REACTIONS (6)
  - DEPRESSION [None]
  - AGGRESSION [None]
  - CRYING [None]
  - ALCOHOL USE [None]
  - EUPHORIC MOOD [None]
  - AMNESIA [None]
